FAERS Safety Report 17082511 (Version 2)
Quarter: 2019Q4

REPORT INFORMATION
  Report Type: Report from Study
  Country: US (occurrence: US)
  Receive Date: 20191127
  Receipt Date: 20191220
  Transmission Date: 20200122
  Serious: Yes (Other)
  Sender: FDA-Public Use
  Company Number: US-EISAI MEDICAL RESEARCH-EC-2019-057773

PATIENT
  Age: 66 Year
  Sex: Male

DRUGS (3)
  1. LENVIMA [Suspect]
     Active Substance: LENVATINIB
     Route: 048
     Dates: start: 20190916, end: 20191029
  2. LENVIMA [Suspect]
     Active Substance: LENVATINIB
     Indication: METASTASIS
     Dosage: EXACT DOSING NOT PROVIDED (NOT SURE IT WAS EITHER 14 MG OR 24 MG)
     Route: 048
     Dates: start: 201809
  3. LENVIMA [Suspect]
     Active Substance: LENVATINIB
     Dosage: MISSED 1-2 DOSES
     Route: 048
     Dates: start: 20190615, end: 20190911

REACTIONS (15)
  - Myocardial infarction [Recovered/Resolved]
  - Dry skin [Not Recovered/Not Resolved]
  - Decreased appetite [Not Recovered/Not Resolved]
  - Dyspnoea [Not Recovered/Not Resolved]
  - Abdominal pain upper [Not Recovered/Not Resolved]
  - Vision blurred [Not Recovered/Not Resolved]
  - Chills [Not Recovered/Not Resolved]
  - Diarrhoea [Recovering/Resolving]
  - Palmar-plantar erythrodysaesthesia syndrome [Recovering/Resolving]
  - Abdominal pain [Not Recovered/Not Resolved]
  - Gastrointestinal inflammation [Not Recovered/Not Resolved]
  - Visual impairment [Not Recovered/Not Resolved]
  - Weight decreased [Recovering/Resolving]
  - Eye haemorrhage [Not Recovered/Not Resolved]
  - Fatigue [Not Recovered/Not Resolved]

NARRATIVE: CASE EVENT DATE: 2019
